FAERS Safety Report 6880107-X (Version None)
Quarter: 2010Q3

REPORT INFORMATION
  Report Type: 
  Country: None (occurrence: None)
  Receive Date: 20100728
  Receipt Date: 20091016
  Transmission Date: 20110219
  Serious: Yes (Life-Threatening, Hospitalization)
  Sender: FDA-Public Use
  Company Number: US-BRISTOL-MYERS SQUIBB COMPANY-14820435

PATIENT
  Age: 64 Year
  Sex: Female
  Weight: 68 kg

DRUGS (11)
  1. DASATINIB [Suspect]
     Indication: ACUTE LYMPHOCYTIC LEUKAEMIA RECURRENT
     Dosage: DOSAGE REDUCED TO 50MG ORAL TWICE DAILY
  2. ACYCLOVIR [Concomitant]
  3. ATIVAN [Concomitant]
  4. CARDIZEM CD [Concomitant]
  5. DILAUDID [Concomitant]
  6. FLUCONAZOLE [Concomitant]
  7. PAXIL [Concomitant]
  8. BACTRIM DS [Concomitant]
  9. ZOFRAN [Concomitant]
  10. ETOPOSIDE [Concomitant]
  11. CYTARABINE [Concomitant]

REACTIONS (3)
  - ELECTROCARDIOGRAM QT PROLONGED [None]
  - PLEURAL EFFUSION [None]
  - SUPRAVENTRICULAR TACHYCARDIA [None]
